FAERS Safety Report 6131927-0 (Version None)
Quarter: 2009Q1

REPORT INFORMATION
  Report Type: 
  Country: None (occurrence: None)
  Receive Date: 20090325
  Receipt Date: 20090313
  Transmission Date: 20090719
  Serious: Yes (Other)
  Sender: FDA-Public Use
  Company Number: US-PFIZER INC-2009166934

PATIENT
  Sex: Female
  Weight: 98 kg

DRUGS (8)
  1. DEPO-PROVERA [Suspect]
     Indication: CONTRACEPTION
     Dates: start: 20081208
  2. METFORMIN HYDROCHLORIDE [Concomitant]
  3. HUMALOG [Concomitant]
  4. CALCIUM [Concomitant]
  5. LANTUS [Concomitant]
  6. TRICOR [Concomitant]
  7. ATORVASTATIN CALCIUM [Concomitant]
  8. FISH OIL [Concomitant]

REACTIONS (3)
  - ABORTION SPONTANEOUS [None]
  - DRUG INEFFECTIVE [None]
  - UNINTENDED PREGNANCY [None]
